FAERS Safety Report 22126544 (Version 1)
Quarter: 2023Q1

REPORT INFORMATION
  Report Type: Spontaneous
  Country: US (occurrence: US)
  Receive Date: 20230322
  Receipt Date: 20230322
  Transmission Date: 20230417
  Serious: No
  Sender: FDA-Public Use
  Company Number: US-ALLERGAN-2305412US

PATIENT
  Age: 31 Year
  Sex: Female

DRUGS (2)
  1. BOTOX [Suspect]
     Active Substance: ONABOTULINUMTOXINA
     Indication: Migraine
     Dosage: UNK UNK, SINGLE
     Dates: start: 20201215, end: 20201215
  2. UBRELVY [Suspect]
     Active Substance: UBROGEPANT
     Indication: Migraine
     Dates: start: 20230120

REACTIONS (2)
  - Headache [Not Recovered/Not Resolved]
  - Migraine [Unknown]

NARRATIVE: CASE EVENT DATE: 20230201
